FAERS Safety Report 7628513-X (Version None)
Quarter: 2011Q4

REPORT INFORMATION
  Report Type: 
  Country: None (occurrence: None)
  Receive Date: 20110711
  Receipt Date: 20110624
  Transmission Date: 20120403
  Serious: Yes (Hospitalization)
  Sender: FDA-Public Use
  Company Number: 2011028715

PATIENT
  Sex: Female
  Weight: 98.8842 kg

DRUGS (16)
  1. OMEPRAZOLE [Concomitant]
  2. PROVENTIL [Concomitant]
  3. ALTACE [Concomitant]
  4. ZETIA [Concomitant]
  5. ASPIRIN [Concomitant]
  6. SINGULAIR [Concomitant]
  7. NASACORT [Concomitant]
  8. HIZENTRA [Suspect]
     Indication: IMMUNODEFICIENCY COMMON VARIABLE
     Dosage: SEE IMAGE
     Route: 058
     Dates: start: 20110307
  9. GLIMEPIRIDE [Concomitant]
  10. SYMBICORT [Concomitant]
  11. CO Q 10 (UBIDECARENONE) [Concomitant]
  12. HIZENTRA [Suspect]
     Indication: IMMUNODEFICIENCY COMMON VARIABLE
     Dosage: SEE IMAGE
     Route: 058
  13. LANTUS [Concomitant]
  14. PREMARIN [Concomitant]
  15. OMEGA-3 FISH OIL (OMEGA-3 MARINE TRIGLYCERIDES) [Concomitant]
  16. SYNTHROID [Concomitant]

REACTIONS (5)
  - CHEST DISCOMFORT [None]
  - TRANSIENT ISCHAEMIC ATTACK [None]
  - DIZZINESS [None]
  - MUSCULOSKELETAL STIFFNESS [None]
  - NASAL CONGESTION [None]
